FAERS Safety Report 5429921-8 (Version None)
Quarter: 2007Q3

REPORT INFORMATION
  Report Type: 
  Country: None (occurrence: None)
  Receive Date: 20070827
  Receipt Date: 20070813
  Transmission Date: 20080115
  Serious: Yes (Death, Hospitalization)
  Sender: FDA-Public Use
  Company Number: 2007VX002095

PATIENT
  Age: 66 Year
  Sex: Female

DRUGS (5)
  1. FLURAZEPAM HCL [Suspect]
  2. TRAZODONE HCL [Suspect]
  3. DIPYRONE TAB [Suspect]
  4. PRIDINOL (PRIDINOL) [Suspect]
  5. CHARCOAL, ACTIVATED (CHARCOAL, ACTIVATED) [Suspect]

REACTIONS (19)
  - ALANINE AMINOTRANSFERASE INCREASED [None]
  - ASPARTATE AMINOTRANSFERASE INCREASED [None]
  - BLOOD CREATINE PHOSPHOKINASE INCREASED [None]
  - BLOOD LACTATE DEHYDROGENASE INCREASED [None]
  - COMPLETED SUICIDE [None]
  - CONTINUOUS HAEMODIAFILTRATION [None]
  - CYANOSIS [None]
  - DEPRESSED LEVEL OF CONSCIOUSNESS [None]
  - DRUG TOXICITY [None]
  - HEPATIC FAILURE [None]
  - HEPATIC NECROSIS [None]
  - LOSS OF CONSCIOUSNESS [None]
  - MULTIPLE DRUG OVERDOSE INTENTIONAL [None]
  - OEDEMA [None]
  - PULMONARY CONGESTION [None]
  - PULMONARY OEDEMA [None]
  - RENAL FAILURE [None]
  - SOMNOLENCE [None]
  - THROMBOCYTOPENIA [None]
